FAERS Safety Report 4315134-X (Version None)
Quarter: 2004Q1

REPORT INFORMATION
  Report Type: 
  Country: None (occurrence: None)
  Receive Date: 20040310
  Receipt Date: 20040209
  Transmission Date: 20041129
  Serious: Yes (Life-Threatening, Hospitalization, Disabling)
  Sender: FDA-Public Use
  Company Number: US-GLAXOSMITHKLINE-A0501711A

PATIENT
  Age: 37 Year
  Sex: Female

DRUGS (1)
  1. WELLBUTRIN XL [Suspect]
     Indication: DEPRESSION
     Dosage: 300MG UNKNOWN
     Route: 048
     Dates: start: 20030910, end: 20040126

REACTIONS (5)
  - HEMIPLEGIA [None]
  - PAIN [None]
  - PARAESTHESIA [None]
  - SIMPLE PARTIAL SEIZURES [None]
  - SYNCOPE [None]
